FAERS Safety Report 10375470 (Version 2)
Quarter: 2018Q2

REPORT INFORMATION
  Report Type: Spontaneous
  Country: US (occurrence: US)
  Receive Date: 20140811
  Receipt Date: 20180517
  Transmission Date: 20180711
  Serious: No
  Sender: FDA-Public Use
  Company Number: US-PFIZER INC-2014220200

PATIENT
  Age: 73 Year
  Sex: Male

DRUGS (1)
  1. NORVASC [Suspect]
     Active Substance: AMLODIPINE BESYLATE
     Dosage: UNK

REACTIONS (2)
  - Drug hypersensitivity [Unknown]
  - Headache [Unknown]
